FAERS Safety Report 7355558 (Version 5)
Quarter: 2013Q4

REPORT INFORMATION
  Report Type: Spontaneous
  Country: US (occurrence: US)
  Receive Date: 20100415
  Receipt Date: 20131106
  Transmission Date: 20140711
  Serious: Yes (Hospitalization, Other)
  Sender: FDA-Public Use
  Company Number: US-BAYER-201019188NA

PATIENT
  Age: 42 Year
  Sex: Female
  Weight: 74.83 kg

DRUGS (8)
  1. YASMIN [Suspect]
     Indication: PRODUCT USED FOR UNKNOWN INDICATION
     Dosage: 14-OCT-2003: YASMIN SAMPLES FOR THREE MONTHS WERE PROVIDED.
     Route: 048
     Dates: start: 200502, end: 200504
  2. YAZ [Suspect]
     Indication: PRODUCT USED FOR UNKNOWN INDICATION
     Dosage: UNK
     Dates: end: 2005
  3. NAPROSYN [Concomitant]
     Indication: MUSCULOSKELETAL DISCOMFORT
  4. ANTIBIOTICS [Concomitant]
     Dosage: IV FLUID.
     Route: 042
  5. ANALGESICS [Concomitant]
     Dosage: IV FLUID
     Route: 042
  6. HEPARIN [Concomitant]
  7. OXYGEN [Concomitant]
  8. LASIX [Concomitant]

REACTIONS (16)
  - Deep vein thrombosis [Recovering/Resolving]
  - Cholecystitis acute [Recovering/Resolving]
  - Cholelithiasis [Recovering/Resolving]
  - Pulmonary embolism [Recovering/Resolving]
  - Muscle tightness [Recovering/Resolving]
  - Pain in extremity [Recovering/Resolving]
  - Oedema peripheral [Recovering/Resolving]
  - Abdominal pain upper [Recovering/Resolving]
  - Abdominal pain upper [Recovering/Resolving]
  - Nausea [Recovering/Resolving]
  - Vomiting [Recovering/Resolving]
  - Abdominal pain [Recovering/Resolving]
  - Dyspnoea [Recovering/Resolving]
  - Painful respiration [Recovering/Resolving]
  - Oxygen saturation decreased [Recovering/Resolving]
  - Migraine [Recovered/Resolved]
